FAERS Safety Report 19570202 (Version 1)
Quarter: 2021Q3

REPORT INFORMATION
  Report Type: Report from Study
  Country: IN (occurrence: IN)
  Receive Date: 20210716
  Receipt Date: 20210716
  Transmission Date: 20211014
  Serious: Yes (Death, Other)
  Sender: FDA-Public Use
  Company Number: NVSC2021IN088433

PATIENT
  Age: 42 Year
  Sex: Male

DRUGS (2)
  1. TACSANT [Suspect]
     Active Substance: TACROLIMUS
     Dosage: 1 MG, BID
     Route: 065
     Dates: start: 20150506
  2. TACSANT [Suspect]
     Active Substance: TACROLIMUS
     Indication: RENAL TRANSPLANT
     Dosage: 1 MG, BID (2 MG, QD, CAPSULE)
     Route: 065
     Dates: start: 20110406

REACTIONS (2)
  - Myocardial infarction [Fatal]
  - Transplant rejection [Unknown]

NARRATIVE: CASE EVENT DATE: 20210330
